FAERS Safety Report 4889624-5 (Version None)
Quarter: 2006Q1

REPORT INFORMATION
  Report Type: 
  Country: None (occurrence: None)
  Receive Date: 20060124
  Receipt Date: 20050804
  Transmission Date: 20060701
  Serious: Yes (Hospitalization)
  Sender: FDA-Public Use
  Company Number: J200502563

PATIENT
  Age: 6 Year
  Sex: Female

DRUGS (8)
  1. SAWACILLIN [Suspect]
     Indication: PHARYNGITIS
     Route: 048
     Dates: start: 20050710, end: 20050714
  2. CEFCAPENE PIVOXIL HYDROCHLORIDE [Suspect]
     Indication: PHARYNGITIS
     Dosage: 50MG THREE TIMES PER DAY
     Route: 048
     Dates: start: 20050717, end: 20050720
  3. SUPPOSITORY [Concomitant]
  4. SENEGA [Concomitant]
     Indication: PHARYNGITIS
     Dosage: 5ML PER DAY
     Route: 048
     Dates: start: 20050716, end: 20050728
  5. PERIACTIN [Concomitant]
     Indication: PHARYNGITIS
     Dosage: 7.5ML PER DAY
     Route: 048
     Dates: start: 20050716, end: 20050728
  6. BISOLVON [Concomitant]
     Indication: PHARYNGITIS
     Dosage: 7.5ML PER DAY
     Route: 048
     Dates: start: 20050716, end: 20050728
  7. SOLDEM [Concomitant]
     Indication: DRUG USE FOR UNKNOWN INDICATION
     Route: 065
  8. 50% DEXTROSE INFUSION [Concomitant]
     Indication: DRUG USE FOR UNKNOWN INDICATION
     Route: 042
     Dates: start: 20050719

REACTIONS (5)
  - DRUG ERUPTION [None]
  - PIGMENTATION DISORDER [None]
  - PYREXIA [None]
  - RASH [None]
  - RASH GENERALISED [None]
